FAERS Safety Report 9026887 (Version 1)
Quarter: 2013Q1

REPORT INFORMATION
  Report Type: Spontaneous
  Country: US (occurrence: US)
  Receive Date: 20130123
  Receipt Date: 20130123
  Transmission Date: 20140127
  Serious: No
  Sender: FDA-Public Use
  Company Number: US-PFIZER INC-2013022339

PATIENT
  Age: 14 Year
  Sex: Male
  Weight: 62.59 kg

DRUGS (2)
  1. ZITHROMAX [Suspect]
     Indication: PHARYNGITIS
     Dosage: 500 MG (TWO TABLETS OF 250MG) DAILY
     Route: 048
     Dates: start: 20130113
  2. ZITHROMAX [Suspect]
     Dosage: ONE TABLET OF 250 MG DAILY
     Route: 048
     Dates: start: 20130114, end: 20130115

REACTIONS (1)
  - Hypersensitivity [Not Recovered/Not Resolved]
